FAERS Safety Report 8595688-8 (Version None)
Quarter: 2012Q3

REPORT INFORMATION
  Report Type: 
  Country: None (occurrence: None)
  Receive Date: 20120801
  Receipt Date: 20120716
  Transmission Date: 20120928
  Serious: Yes (Hospitalization, Disabling, Other)
  Sender: FDA-Public Use
  Company Number: 2011MA015564

PATIENT
  Sex: Male
  Weight: 124.2856 kg

DRUGS (40)
  1. DARVON [Concomitant]
  2. FLEXERIL [Concomitant]
  3. HYDROCODONE BITARTRATE AND ACETAMINOPHEN [Concomitant]
  4. LEVAQUIN [Concomitant]
  5. LEVITRA [Concomitant]
  6. METFORMIN HCL [Concomitant]
  7. METRONIDAZOLE [Concomitant]
  8. NITROGLYCERIN [Concomitant]
  9. WELLBUTRIN [Concomitant]
  10. CEPHALEXIN [Concomitant]
  11. FELDENE [Concomitant]
  12. LANTUS [Concomitant]
  13. LEXAPRO [Concomitant]
  14. LOPID [Concomitant]
  15. NSAID [Concomitant]
  16. TAZORAC [Concomitant]
  17. CHOLESTYRAMINE [Concomitant]
  18. LIPITOR [Concomitant]
  19. LISINOPRIL [Concomitant]
  20. NARCOTICS [Concomitant]
  21. ATENOLOL [Concomitant]
  22. GABAPENTIN [Concomitant]
  23. TRICOR [Concomitant]
  24. METOCLOPRAMIDE [Suspect]
     Indication: GASTROOESOPHAGEAL REFLUX DISEASE
     Dosage: 10 MG;QID;PO
     Route: 048
     Dates: start: 20010211, end: 20100615
  25. AVANDIA [Concomitant]
  26. CEFADROXIL [Concomitant]
  27. FUROSEMIDE [Concomitant]
  28. LISINOPRIL AND HYDROCHLOROTHIAZIDE [Concomitant]
  29. METHOCARBAMOL [Concomitant]
  30. POTASSIUM CHLORIDE [Concomitant]
  31. SULFAMETHOXADOLE/TRIMETHOPRIM [Concomitant]
  32. OXYCODONE AND ASPIRIN [Concomitant]
  33. PIROXICAM [Concomitant]
  34. AMOXICILLIN [Concomitant]
  35. FLUOXETINE HCL [Concomitant]
  36. NEXIUM [Concomitant]
  37. HUMALOG [Concomitant]
  38. ISOSORBIDE [Concomitant]
  39. PLAVIX [Concomitant]
  40. SPIRONOLACTONE [Concomitant]

REACTIONS (28)
  - INCORRECT DRUG ADMINISTRATION DURATION [None]
  - BACK PAIN [None]
  - DYSKINESIA [None]
  - DYSPHAGIA [None]
  - HIATUS HERNIA [None]
  - MUSCLE TWITCHING [None]
  - ECONOMIC PROBLEM [None]
  - PNEUMONIA [None]
  - BLEPHAROSPASM [None]
  - GASTROINTESTINAL PAIN [None]
  - EMOTIONAL DISORDER [None]
  - HYPERTENSION [None]
  - PSORIASIS [None]
  - GASTROOESOPHAGEAL REFLUX DISEASE [None]
  - STRESS [None]
  - CARDIAC FAILURE CONGESTIVE [None]
  - CORONARY ARTERY OCCLUSION [None]
  - CORONARY ARTERY DISEASE [None]
  - ARTERIOSCLEROSIS [None]
  - SLEEP APNOEA SYNDROME [None]
  - DIABETES MELLITUS [None]
  - SPINAL COLUMN STENOSIS [None]
  - HYPERLIPIDAEMIA [None]
  - ERECTILE DYSFUNCTION [None]
  - PAIN IN EXTREMITY [None]
  - DYSTONIA [None]
  - BRONCHITIS [None]
  - CHEST PAIN [None]
